FAERS Safety Report 14871977 (Version 12)
Quarter: 2018Q3

REPORT INFORMATION
  Report Type: Spontaneous
  Country: BG (occurrence: BG)
  Receive Date: 20180509
  Receipt Date: 20180920
  Transmission Date: 20181010
  Serious: Yes (Other)
  Sender: FDA-Public Use
  Company Number: BG-PFIZER INC-2018175236

PATIENT
  Age: 50 Year
  Sex: Male

DRUGS (1)
  1. DOCETAXEL. [Suspect]
     Active Substance: DOCETAXEL
     Indication: PROSTATE CANCER
     Dosage: 5 COURSES

REACTIONS (1)
  - Drug resistance [Unknown]
